FAERS Safety Report 6574835-3 (Version None)
Quarter: 2010Q1

REPORT INFORMATION
  Report Type: 
  Country: None (occurrence: None)
  Receive Date: 20100209
  Receipt Date: 20100125
  Transmission Date: 20100710
  Serious: Yes (Disabling, Other)
  Sender: FDA-Public Use
  Company Number: PHEH2009US00892

PATIENT
  Sex: Male

DRUGS (3)
  1. ZOMETA [Suspect]
     Indication: NEOPLASM MALIGNANT
     Dosage: UNK
     Dates: start: 20080201, end: 20080101
  2. LUPRON [Concomitant]
     Dosage: UNK
     Dates: start: 20080117
  3. PEN-VEE K [Concomitant]
     Dosage: 500 MG, UNK

REACTIONS (20)
  - ANHEDONIA [None]
  - ANXIETY [None]
  - BACK PAIN [None]
  - BONE LESION [None]
  - DISCOMFORT [None]
  - DYSPHAGIA [None]
  - EMOTIONAL DISTRESS [None]
  - HIATUS HERNIA [None]
  - INJURY [None]
  - MENTAL DISORDER [None]
  - OSTEONECROSIS [None]
  - PAIN [None]
  - PAIN IN JAW [None]
  - PHYSICAL DISABILITY [None]
  - POLLAKIURIA [None]
  - QUALITY OF LIFE DECREASED [None]
  - REFLUX OESOPHAGITIS [None]
  - SCAR [None]
  - SYNOVIAL CYST [None]
  - TOOTHACHE [None]
